FAERS Safety Report 15706690 (Version 3)
Quarter: 2023Q1

REPORT INFORMATION
  Report Type: Spontaneous
  Country: FR (occurrence: FR)
  Receive Date: 20181210
  Receipt Date: 20230225
  Transmission Date: 20230418
  Serious: Yes (Hospitalization)
  Sender: FDA-Public Use
  Company Number: None

PATIENT
  Age: 28 Year
  Sex: Male

DRUGS (8)
  1. AMOXICILLIN\CLAVULANIC ACID [Suspect]
     Active Substance: AMOXICILLIN\CLAVULANIC ACID
     Indication: Product used for unknown indication
     Dosage: 3 G, 1X, TOTAL
     Route: 048
     Dates: start: 20180213, end: 20180213
  2. ALPRAZOLAM [Suspect]
     Active Substance: ALPRAZOLAM
     Indication: Product used for unknown indication
     Dosage: 1 DF, 1X, TOTAL
     Route: 048
     Dates: start: 20180213, end: 20180213
  3. DOXYCYCLINE [Suspect]
     Active Substance: DOXYCYCLINE
     Indication: Product used for unknown indication
     Dosage: 15 DF, 1X, TOTAL
     Route: 048
     Dates: start: 20180213, end: 20180213
  4. ACETAMINOPHEN [Suspect]
     Active Substance: ACETAMINOPHEN
     Indication: Product used for unknown indication
     Dosage: 8 G, 1X, TOTAL
     Route: 048
     Dates: start: 20180213, end: 20180213
  5. RAMIPRIL [Suspect]
     Active Substance: RAMIPRIL
     Indication: Product used for unknown indication
     Dosage: 250 MG, 1X, TOTAL
     Route: 048
     Dates: start: 20180213, end: 20180213
  6. DAFALGAN CODEINE [Suspect]
     Active Substance: ACETAMINOPHEN\CODEINE PHOSPHATE
     Indication: Product used for unknown indication
     Dosage: 1 DF, UNK(TOTAL)
     Route: 048
     Dates: start: 20180213, end: 20180213
  7. FENSPIRIDE HYDROCHLORIDE [Suspect]
     Active Substance: FENSPIRIDE HYDROCHLORIDE
     Indication: Product used for unknown indication
     Dosage: 13 DF, 1X, TOTAL
     Route: 048
     Dates: start: 20180213, end: 20180213
  8. ACETAMINOPHEN\CODEINE PHOSPHATE [Suspect]
     Active Substance: ACETAMINOPHEN\CODEINE PHOSPHATE
     Indication: Product used for unknown indication
     Dosage: 1 DF, 1X, TOTAL
     Route: 065
     Dates: start: 20180213, end: 20180213

REACTIONS (3)
  - Poisoning deliberate [Recovered/Resolved]
  - Arrhythmia [Recovered/Resolved]
  - Overdose [Unknown]

NARRATIVE: CASE EVENT DATE: 20180213
